FAERS Safety Report 4819760-0 (Version None)
Quarter: 2005Q4

REPORT INFORMATION
  Report Type: 
  Country: None (occurrence: None)
  Receive Date: 20051102
  Receipt Date: 20051020
  Transmission Date: 20060501
  Serious: Yes (Other)
  Sender: FDA-Public Use
  Company Number: 2005146154

PATIENT
  Age: 71 Year
  Sex: Female

DRUGS (5)
  1. CELEBREX [Suspect]
     Indication: OSTEOARTHRITIS
     Dosage: 200 MG (200 MG, 1 IN 1 D)
  2. TOPRIL (CAPTOPRIL) [Concomitant]
  3. ENALAPRIL MALEATE [Concomitant]
  4. FOSAMAX [Concomitant]
  5. LASIX [Concomitant]

REACTIONS (4)
  - KNEE OPERATION [None]
  - MOVEMENT DISORDER [None]
  - PAIN IN EXTREMITY [None]
  - PHARMACEUTICAL PRODUCT COMPLAINT [None]
